FAERS Safety Report 16082130 (Version 1)
Quarter: 2019Q1

REPORT INFORMATION
  Report Type: Spontaneous
  Country: CA (occurrence: CA)
  Receive Date: 20190317
  Receipt Date: 20190317
  Transmission Date: 20190418
  Serious: Yes (Other)
  Sender: FDA-Public Use
  Company Number: CA-SAMSUNG BIOEPIS-SB-2019-05964

PATIENT
  Age: 40 Year
  Sex: Male

DRUGS (1)
  1. INFLIXIMAB [Suspect]
     Active Substance: INFLIXIMAB
     Indication: COLITIS ULCERATIVE
     Route: 042

REACTIONS (5)
  - Hyperhidrosis [Recovered/Resolved]
  - Underdose [Recovered/Resolved]
  - Feeling hot [Recovered/Resolved]
  - Blood pressure decreased [Recovered/Resolved]
  - Haematochezia [Recovered/Resolved]
